FAERS Safety Report 14770092 (Version 14)
Quarter: 2021Q2

REPORT INFORMATION
  Report Type: Spontaneous
  Country: GB (occurrence: GB)
  Receive Date: 20180417
  Receipt Date: 20210621
  Transmission Date: 20210716
  Serious: Yes (Hospitalization, Other)
  Sender: FDA-Public Use
  Company Number: GB-OTSUKA-2018_008245

PATIENT
  Age: 35 Year
  Sex: Female

DRUGS (13)
  1. RISPERIDONE. [Suspect]
     Active Substance: RISPERIDONE
     Indication: SCHIZOPHRENIA
     Dosage: 3 MG, UNK
     Route: 048
  2. OLANZAPINE. [Suspect]
     Active Substance: OLANZAPINE
     Dosage: 10 MG, UNK
     Route: 065
  3. OMEPRAZOLE. [Suspect]
     Active Substance: OMEPRAZOLE
     Indication: SCHIZOPHRENIA
     Dosage: 3 MG
     Route: 065
  4. OMEPRAZOLE. [Suspect]
     Active Substance: OMEPRAZOLE
     Dosage: UNK
     Route: 065
  5. SERTRALINE [Suspect]
     Active Substance: SERTRALINE HYDROCHLORIDE
     Dosage: 150 MG, UNK
     Route: 065
  6. DIAZEPAM. [Suspect]
     Active Substance: DIAZEPAM
     Indication: SCHIZOPHRENIA
     Dosage: 5 MG, UNK
     Route: 065
  7. ARIPIPRAZOLE. [Suspect]
     Active Substance: ARIPIPRAZOLE
     Dosage: 5 MG
     Route: 065
  8. ARIPIPRAZOLE. [Suspect]
     Active Substance: ARIPIPRAZOLE
     Indication: SCHIZOPHRENIA
     Dosage: 10 MG, UNK
     Route: 065
  9. OLANZAPINE. [Suspect]
     Active Substance: OLANZAPINE
     Dosage: 15 MG, UNK
     Route: 065
  10. OLANZAPINE. [Suspect]
     Active Substance: OLANZAPINE
     Indication: SCHIZOPHRENIA
     Dosage: 5 MG, UNK
     Route: 065
  11. DIAZEPAM. [Suspect]
     Active Substance: DIAZEPAM
     Dosage: 15 MG
     Route: 065
  12. SERTRALINE [Suspect]
     Active Substance: SERTRALINE HYDROCHLORIDE
     Indication: SCHIZOPHRENIA
     Dosage: 100 MG, UNK
     Route: 065
  13. SERTRALINE [Suspect]
     Active Substance: SERTRALINE HYDROCHLORIDE
     Dosage: 50 MG, UNK
     Route: 065

REACTIONS (6)
  - Sepsis [Unknown]
  - Schizophrenia [Unknown]
  - Treatment noncompliance [Unknown]
  - Social avoidant behaviour [Unknown]
  - Disease recurrence [Unknown]
  - Dehydration [Unknown]
